FAERS Safety Report 9518802 (Version 1)
Quarter: 2013Q3

REPORT INFORMATION
  Report Type: Spontaneous
  Country: US (occurrence: US)
  Receive Date: 20130912
  Receipt Date: 20130912
  Transmission Date: 20140515
  Serious: Yes (Other)
  Sender: FDA-Public Use
  Company Number: US-PFIZER INC-2013261862

PATIENT
  Age: 48 Year
  Sex: Female
  Weight: 99.77 kg

DRUGS (2)
  1. LYRICA [Suspect]
     Indication: TRIGEMINAL NEURALGIA
     Dosage: 100 MG, 2X/DAY
     Route: 048
     Dates: start: 2004
  2. LYRICA [Suspect]
     Indication: FIBROMYALGIA
     Dosage: 100 MG, 1X/DAY
     Route: 048

REACTIONS (13)
  - Off label use [Unknown]
  - Loss of consciousness [Unknown]
  - Road traffic accident [Unknown]
  - Head injury [Unknown]
  - Back injury [Unknown]
  - Oral neoplasm [Unknown]
  - Muscle spasms [Unknown]
  - Facial spasm [Unknown]
  - Arthralgia [Unknown]
  - Headache [Unknown]
  - Pain [Unknown]
  - Depression [Unknown]
  - Drug ineffective [Unknown]
